FAERS Safety Report 5392805-8 (Version None)
Quarter: 2007Q3

REPORT INFORMATION
  Report Type: 
  Country: None (occurrence: None)
  Receive Date: 20070718
  Receipt Date: 20070709
  Transmission Date: 20080115
  Serious: Yes (Hospitalization, Other)
  Sender: FDA-Public Use
  Company Number: 07H-153-0312859-00

PATIENT
  Age: 47 Year
  Sex: Female

DRUGS (4)
  1. VANCOMYCIN HYDROCHLORIDE [Suspect]
     Indication: ARTERIOVENOUS FISTULA SITE INFECTION
     Dosage: 750 MG, WEEKLY, INTRAVENOUS, 500 MG, 3 TIMES A WEEK, INTRAVENOUS
     Route: 042
  2. VANCOMYCIN HYDROCHLORIDE [Suspect]
     Indication: ARTERIOVENOUS FISTULA SITE INFECTION
     Dosage: 750 MG, WEEKLY, INTRAVENOUS, 500 MG, 3 TIMES A WEEK, INTRAVENOUS
     Route: 042
  3. IRBESARTAN [Concomitant]
  4. AMLODIPINE [Concomitant]

REACTIONS (2)
  - ERYTHEMA MULTIFORME [None]
  - TYPE IV HYPERSENSITIVITY REACTION [None]
